FAERS Safety Report 18004993 (Version 1)
Quarter: 2020Q3

REPORT INFORMATION
  Report Type: Other
  Country: FR (occurrence: FR)
  Receive Date: 20200709
  Receipt Date: 20200709
  Transmission Date: 20201103
  Serious: Yes (Hospitalization)
  Sender: FDA-Public Use
  Company Number: FR-GENUS_LIFESCIENCES-USA-POI0580202000212

PATIENT
  Age: 31 Year
  Sex: Female

DRUGS (1)
  1. GOPRELTO [Suspect]
     Active Substance: COCAINE HYDROCHLORIDE
     Indication: PRODUCT USED FOR UNKNOWN INDICATION
     Dates: start: 2019, end: 2019

REACTIONS (1)
  - Left ventricular failure [Recovered/Resolved]

NARRATIVE: CASE EVENT DATE: 2019
